FAERS Safety Report 11635467 (Version 2)
Quarter: 2015Q4

REPORT INFORMATION
  Report Type: Spontaneous
  Country: US (occurrence: US)
  Receive Date: 20151016
  Receipt Date: 20151117
  Transmission Date: 20160304
  Serious: Yes (Death)
  Sender: FDA-Public Use
  Company Number: US-ROCHE-1647000

PATIENT
  Age: 85 Year
  Sex: Male
  Weight: 63.56 kg

DRUGS (2)
  1. ADCIRCA [Concomitant]
     Active Substance: TADALAFIL
  2. ESBRIET [Suspect]
     Active Substance: PIRFENIDONE
     Indication: IDIOPATHIC PULMONARY FIBROSIS
     Route: 048
     Dates: start: 20150318, end: 20150731

REACTIONS (1)
  - Death [Fatal]

NARRATIVE: CASE EVENT DATE: 20151011
